FAERS Safety Report 9126842 (Version 3)
Quarter: 2013Q2

REPORT INFORMATION
  Report Type: Spontaneous
  Country: US (occurrence: US)
  Receive Date: 20130122
  Receipt Date: 20130409
  Transmission Date: 20140414
  Serious: Yes (Death, Hospitalization)
  Sender: FDA-Public Use
  Company Number: US-PFIZER INC-2013022102

PATIENT
  Age: 60 Year
  Sex: Male

DRUGS (4)
  1. INLYTA [Suspect]
     Indication: RENAL CANCER
     Dosage: 7 MG, 2X/DAY, (INLYTA 1 MG, INLYTA 5 MG)
     Dates: start: 20120822
  2. INLYTA [Suspect]
     Indication: RENAL CELL CARCINOMA
  3. INLYTA [Suspect]
     Dosage: 1 MG, 3 PO BID
     Route: 048
  4. INLYTA [Suspect]
     Dosage: 1 MG, 3 PO BID
     Dates: start: 20120822

REACTIONS (7)
  - Disease progression [Fatal]
  - Renal cancer [Fatal]
  - Hypercalcaemia [Unknown]
  - Myalgia [Unknown]
  - Arthralgia [Unknown]
  - Fatigue [Unknown]
  - Influenza like illness [Unknown]
